FAERS Safety Report 17528219 (Version 2)
Quarter: 2020Q1

REPORT INFORMATION
  Report Type: Spontaneous
  Country: JP (occurrence: JP)
  Receive Date: 20200311
  Receipt Date: 20200316
  Transmission Date: 20200409
  Serious: Yes (Hospitalization)
  Sender: FDA-Public Use
  Company Number: JP-009507513-2003JPN000521J

PATIENT
  Age: 78 Year
  Sex: Female

DRUGS (1)
  1. GLACTIV [Suspect]
     Active Substance: SITAGLIPTIN
     Dosage: 50 MILLIGRAM, QD
     Route: 048

REACTIONS (1)
  - Gastric dilatation [Recovering/Resolving]

NARRATIVE: CASE EVENT DATE: 2017
